FAERS Safety Report 7271076-1 (Version None)
Quarter: 2011Q1

REPORT INFORMATION
  Report Type: 
  Country: None (occurrence: None)
  Receive Date: 20110202
  Receipt Date: 20110125
  Transmission Date: 20110831
  Serious: Yes (Other)
  Sender: FDA-Public Use
  Company Number: CA-PFIZER INC-2010116022

PATIENT
  Age: 48 Year
  Sex: Female
  Weight: 86.16 kg

DRUGS (6)
  1. LYRICA [Suspect]
     Indication: NERVE INJURY
     Dosage: 75 MG, 4X/DAY
     Dates: start: 20100401, end: 20101008
  2. XANAX [Concomitant]
     Dosage: 0.075 MG, 1X/DAY
     Dates: start: 20000101
  3. SPIRONOLACTONE [Concomitant]
     Dosage: 100 MG, 2X/DAY
     Dates: start: 20000101
  4. MINOCYCLINE [Concomitant]
     Indication: ACNE
     Dosage: 100 UNK, 1X/DAY
     Dates: start: 20000101
  5. LYRICA [Suspect]
     Indication: COMPLEX REGIONAL PAIN SYNDROME
  6. RANITIDINE [Concomitant]
     Indication: GASTROOESOPHAGEAL REFLUX DISEASE
     Dosage: 150 MG, 2X/DAY
     Dates: start: 20090101

REACTIONS (6)
  - DRY EYE [None]
  - DIABETES MELLITUS [None]
  - MUSCLE TWITCHING [None]
  - BLEPHARITIS [None]
  - WEIGHT INCREASED [None]
  - MUSCLE SPASMS [None]
